FAERS Safety Report 7492498-X (Version None)
Quarter: 2011Q2

REPORT INFORMATION
  Report Type: 
  Country: None (occurrence: None)
  Receive Date: 20110519
  Receipt Date: 20110512
  Transmission Date: 20111010
  Serious: Yes (Death, Hospitalization)
  Sender: FDA-Public Use
  Company Number: SE-PFIZER INC-2010164513

PATIENT
  Age: 63 Year
  Sex: Male
  Weight: 64.3 kg

DRUGS (12)
  1. TESTOSTERONE [Concomitant]
     Indication: BLOOD LUTEINISING HORMONE DECREASED
     Dosage: 250 MG, MONTHLY
     Dates: start: 19950201
  2. TEGRETOL [Concomitant]
     Indication: EPILEPSY
     Dosage: 600 MG/24H, UNK
     Dates: start: 20070724
  3. LOPERAMIDE HYDROCHLORIDE [Concomitant]
     Indication: DIARRHOEA INFECTIOUS
     Dosage: 12 MG/24H, UNK
     Dates: start: 19940601
  4. CORTISONE ACETATE [Concomitant]
     Indication: BLOOD CORTICOTROPHIN DECREASED
     Dosage: 25 MG/24H, UNK
     Dates: start: 19671101
  5. LEVOTHYROXINE [Concomitant]
     Indication: BLOOD THYROID STIMULATING HORMONE
     Dosage: 0.15 MH, 1X/DAY
     Dates: start: 20071020
  6. TESTOSTERONE [Concomitant]
     Indication: HYPOGONADISM
  7. PROPAVAN [Concomitant]
     Indication: SLEEP DISORDER
     Dosage: 25 MG, AS NEEDED
     Dates: start: 19980801
  8. FENEMAL ^ACO^ [Concomitant]
  9. SOMATROPIN [Suspect]
     Indication: HYPOPITUITARISM
     Dosage: 7 INJECTIONS/WEEK
     Dates: start: 19951103, end: 20090731
  10. TESTOSTERONE [Concomitant]
     Indication: BLOOD FOLLICLE STIMULATING HORMONE DECREASED
     Dosage: 1000 MG, UNK
     Dates: start: 20051101
  11. FENEMAL ^ACO^ [Concomitant]
     Indication: EPILEPSY
     Dosage: 0.1 G, 1X/DAY
     Dates: start: 19641001
  12. FENEMAL ^ACO^ [Concomitant]
     Indication: CONVULSION

REACTIONS (1)
  - ANAPLASTIC ASTROCYTOMA [None]
